FAERS Safety Report 6396578-1 (Version None)
Quarter: 2009Q4

REPORT INFORMATION
  Report Type: 
  Country: None (occurrence: None)
  Receive Date: 20091012
  Receipt Date: 20091005
  Transmission Date: 20100525
  Serious: Yes (Other)
  Sender: FDA-Public Use
  Company Number: DE-BRISTOL-MYERS SQUIBB COMPANY-14777098

PATIENT
  Age: 17 Year
  Sex: Female
  Weight: 65 kg

DRUGS (2)
  1. ABILIFY [Suspect]
     Dosage: DF = TAB
     Route: 048
     Dates: start: 20090914, end: 20090914
  2. TOPAMAX [Suspect]
     Dosage: TOPAMAX 25MG CAPSULES 40 CAPS
     Route: 048
     Dates: start: 20090914, end: 20090914

REACTIONS (6)
  - BLOOD POTASSIUM DECREASED [None]
  - HYPERVENTILATION [None]
  - HYPOTENSION [None]
  - OVERDOSE [None]
  - SUICIDE ATTEMPT [None]
  - VOMITING [None]
